FAERS Safety Report 8799355 (Version 1)
Quarter: 2012Q4

REPORT INFORMATION
  Report Type: 
  Country: IT (occurrence: IT)
  Receive Date: 20120920
  Receipt Date: 20120920
  Transmission Date: 20130627
  Serious: Yes (Death)
  Sender: FDA-Public Use
  Company Number: IT-BAXTER-2012BAX016968

PATIENT
  Age: 2 Year
  Sex: Female

DRUGS (9)
  1. CLINOLEIC 20% [Suspect]
     Indication: TOTAL PARENTERAL NUTRITION
  2. ACQUA [Suspect]
     Indication: TOTAL PARENTERAL NUTRITION
     Route: 042
  3. GLUCOSIO [Suspect]
     Indication: TOTAL PARENTERAL NUTRITION
  4. SODIUM GLYCEROPHOSPHATE ANHYDROUS [Suspect]
     Indication: TOTAL PARENTERAL NUTRITION
  5. SODIUM CHLORIDE [Suspect]
     Indication: TOTAL PARENTERAL NUTRITION
  6. POTASSIUM CHLORIDE [Suspect]
     Indication: TOTAL PARENTERAL NUTRITION
  7. MAGNESIUM [Suspect]
     Indication: TOTAL PARENTERAL NUTRITION
  8. CALCIUM  GLUCONATE [Suspect]
     Indication: TOTAL PARENTERAL NUTRITION
  9. AMINOPAED [Suspect]

REACTIONS (1)
  - Death [Fatal]
